FAERS Safety Report 21587004 (Version 4)
Quarter: 2023Q1

REPORT INFORMATION
  Report Type: Spontaneous
  Country: AT (occurrence: AT)
  Receive Date: 20221113
  Receipt Date: 20230220
  Transmission Date: 20230418
  Serious: Yes (Other)
  Sender: FDA-Public Use
  Company Number: AT-DAIICHI SANKYO EUROPE GMBH-DSE-2022-137113

PATIENT

DRUGS (8)
  1. BEMPEDOIC ACID [Suspect]
     Active Substance: BEMPEDOIC ACID
     Indication: Hyperlipidaemia
     Dosage: 180 MG, QD
     Route: 048
     Dates: start: 20220714, end: 20221018
  2. BISOPROLOL [Concomitant]
     Active Substance: BISOPROLOL
     Indication: Hypertension
     Dosage: 5 MG 2 X ?
     Route: 065
     Dates: start: 201803
  3. CALCIDURAN [ASCORBIC ACID;CALCIUM PHOSPHATE DIBASIC;COLECALCIFEROL] [Concomitant]
     Indication: Osteoporosis
     Dosage: 1 DF, QD (500/800 1X1)
     Route: 048
     Dates: start: 201710
  4. DIABETEX [Concomitant]
     Indication: Type 2 diabetes mellitus
     Dosage: 850 MG, QD
     Route: 048
     Dates: start: 201807
  5. DAPAGLIFLOZIN [Concomitant]
     Active Substance: DAPAGLIFLOZIN
     Indication: Type 2 diabetes mellitus
     Dosage: 10 MG, QD
     Route: 048
  6. ASPIRIN [Concomitant]
     Active Substance: ASPIRIN
     Indication: Carotid artery stenosis
     Dosage: 100 MG, QD
     Route: 048
     Dates: start: 201805
  7. LISINOPRIL [Concomitant]
     Active Substance: LISINOPRIL
     Indication: Hypertension
     Dosage: 10 MG (1X?)
     Route: 048
     Dates: start: 202206
  8. OLEOVIT [COLECALCIFEROL-CHOLESTERIN] [Concomitant]
     Indication: Osteoporosis
     Dosage: UNK UNK, ONCE EVERY 1 WK (30 DROPS 1X/WEEK ORAL)
     Route: 048
     Dates: start: 201710

REACTIONS (2)
  - Pancreatitis [Recovered/Resolved]
  - Flatulence [Unknown]

NARRATIVE: CASE EVENT DATE: 20220101
